FAERS Safety Report 8602557-3 (Version None)
Quarter: 2012Q3

REPORT INFORMATION
  Report Type: 
  Country: None (occurrence: None)
  Receive Date: 20120817
  Receipt Date: 20120808
  Transmission Date: 20120928
  Serious: Yes (Hospitalization)
  Sender: FDA-Public Use
  Company Number: JP-UCBSA-063020

PATIENT
  Age: 72 Year
  Sex: Male
  Weight: 55.9 kg

DRUGS (9)
  1. RISPERDAL [Concomitant]
     Dosage: DAILY DOSE: 2 MG
     Route: 048
     Dates: start: 20120712, end: 20120721
  2. TEGRETOL [Concomitant]
     Indication: EPILEPSY
     Dosage: DAILY DOSE: 600 MG
     Route: 048
     Dates: start: 20120719, end: 20120726
  3. KEPPRA [Suspect]
     Indication: EPILEPSY
     Route: 048
     Dates: start: 20120720, end: 20120726
  4. URIEF [Concomitant]
     Dosage: DAILY DOSE: 8 MG
     Route: 048
     Dates: start: 20120710
  5. RISPERDAL [Concomitant]
     Indication: PSYCHIATRIC SYMPTOM
     Dosage: DAILY DOSE: 0.5 MG
     Route: 048
     Dates: start: 20120722, end: 20120723
  6. RISPERDAL [Concomitant]
     Dosage: DAILY DOSE: 1 MG
     Route: 048
     Dates: start: 20120711, end: 20120711
  7. TEGRETOL [Concomitant]
     Dosage: DAILY DOSE: 200 MG
     Route: 048
     Dates: start: 20120709, end: 20120711
  8. TEGRETOL [Concomitant]
     Dosage: DAILY DOSE: 400 MG
     Route: 048
     Dates: start: 20120722, end: 20120726
  9. FOLIC ACID [Concomitant]
     Indication: HYPOVITAMINOSIS
     Dosage: DAILY DOSE: 5 MG
     Route: 048
     Dates: start: 20120621

REACTIONS (1)
  - THROMBOCYTOPENIA [None]
